FAERS Safety Report 8795852 (Version 1)
Quarter: 2012Q4

REPORT INFORMATION
  Report Type: 
  Country: AU (occurrence: AU)
  Receive Date: 20120919
  Receipt Date: 20120919
  Transmission Date: 20130627
  Serious: Yes (Other)
  Sender: FDA-Public Use
  Company Number: PHHY2012AU080128

PATIENT
  Age: 81 Year
  Sex: Female

DRUGS (3)
  1. EXFORGE HCT [Suspect]
     Dosage: UNK
  2. CRESTOR [Concomitant]
     Dosage: UNK
  3. JANUMET [Concomitant]
     Dosage: UNK

REACTIONS (3)
  - Breast cancer [Unknown]
  - Fungating wound [Unknown]
  - Photosensitivity reaction [Unknown]
